FAERS Safety Report 18072694 (Version 2)
Quarter: 2020Q4

REPORT INFORMATION
  Report Type: Report from Study
  Country: US (occurrence: US)
  Receive Date: 20200727
  Receipt Date: 20201012
  Transmission Date: 20210113
  Serious: No
  Sender: FDA-Public Use
  Company Number: US-SA-2020SA188779

PATIENT

DRUGS (2)
  1. DUPILUMAB [Suspect]
     Active Substance: DUPILUMAB
     Indication: DERMATITIS ATOPIC
     Dosage: 300 MG, QOW
     Route: 058
     Dates: start: 202007, end: 2020
  2. DUPILUMAB [Suspect]
     Active Substance: DUPILUMAB
     Indication: RESPIRATORY DISORDER
     Dosage: 600 MG, 1X
     Route: 058
     Dates: start: 20200701, end: 20200701

REACTIONS (1)
  - Product use in unapproved indication [Unknown]

NARRATIVE: CASE EVENT DATE: 20200701
